FAERS Safety Report 9796736 (Version 1)
Quarter: 2014Q1

REPORT INFORMATION
  Report Type: Spontaneous
  Country: FR (occurrence: FR)
  Receive Date: 20140103
  Receipt Date: 20140103
  Transmission Date: 20141002
  Serious: Yes (Hospitalization)
  Sender: FDA-Public Use
  Company Number: FR-BRISTOL-MYERS SQUIBB COMPANY-19956259

PATIENT
  Age: 61 Year
  Sex: Male

DRUGS (8)
  1. ERBITUX SOLN FOR INF [Suspect]
     Dosage: LAST DOSE:09OCT2013
     Route: 042
     Dates: start: 20131009, end: 20131009
  2. CISPLATINE [Suspect]
     Dosage: 1DF:100MG/KG?100MG/M2?1G/ML SOLUTION FOR INFUSION
     Route: 042
     Dates: start: 20131009, end: 20131009
  3. 5-FLUOROURACIL [Suspect]
     Dates: start: 20131009
  4. LEVOTHYROX [Concomitant]
  5. CORDARONE [Concomitant]
  6. KARDEGIC [Concomitant]
  7. CRESTOR [Concomitant]
  8. DUROGESIC [Concomitant]

REACTIONS (3)
  - Renal tubular disorder [Not Recovered/Not Resolved]
  - Hypokalaemia [Not Recovered/Not Resolved]
  - Hypomagnesaemia [Not Recovered/Not Resolved]
